FAERS Safety Report 7762870-9 (Version None)
Quarter: 2011Q3

REPORT INFORMATION
  Report Type: 
  Country: None (occurrence: None)
  Receive Date: 20110920
  Receipt Date: 20110913
  Transmission Date: 20111222
  Serious: Yes (Hospitalization, Other)
  Sender: FDA-Public Use
  Company Number: TW-JNJFOC-20110905877

PATIENT

DRUGS (2)
  1. ULTRACET [Suspect]
     Indication: SPINAL OPERATION
     Dosage: 1- 2 TABLETS DAILY FOR TWO AND HALF YEARS AGO
     Route: 048
  2. UNKNOWN MEDICATION [Concomitant]
     Indication: PRODUCT USED FOR UNKNOWN INDICATION
     Route: 065

REACTIONS (3)
  - DUODENAL ULCER [None]
  - COLITIS ULCERATIVE [None]
  - GASTRIC ULCER [None]
